FAERS Safety Report 7865575-9 (Version None)
Quarter: 2011Q4

REPORT INFORMATION
  Report Type: 
  Country: None (occurrence: None)
  Receive Date: 20111028
  Receipt Date: 20110119
  Transmission Date: 20120403
  Serious: No
  Sender: FDA-Public Use
  Company Number: US-GLAXOSMITHKLINE-A0907371A

PATIENT
  Age: 66 Year
  Sex: Female

DRUGS (10)
  1. EFFEXOR [Concomitant]
  2. POTASSIUM CHLORIDE [Concomitant]
  3. UNKNOWN MEDICATION [Concomitant]
  4. HYDROCHLOROTHIAZIDE [Concomitant]
  5. ADVAIR DISKUS 100/50 [Suspect]
     Indication: CHRONIC OBSTRUCTIVE PULMONARY DISEASE
     Dosage: 1PUFF TWICE PER DAY
     Route: 055
  6. CARDIZEM [Concomitant]
  7. THYROID TAB [Concomitant]
  8. AVONEX [Concomitant]
  9. TIZANIDINE HCL [Concomitant]
  10. SPIRIVA [Concomitant]

REACTIONS (2)
  - DYSPNOEA [None]
  - PRODUCT QUALITY ISSUE [None]
